FAERS Safety Report 4885701-3 (Version None)
Quarter: 2005Q4

REPORT INFORMATION
  Report Type: 
  Country: None (occurrence: None)
  Receive Date: 20051220
  Receipt Date: 20050121
  Transmission Date: 20060501
  Serious: Yes (Other)
  Sender: FDA-Public Use
  Company Number: HQWYE344424MAR05

PATIENT
  Age: 25 Year
  Sex: Female
  Weight: 56.75 kg

DRUGS (1)
  1. EFFEXOR XR [Suspect]
     Indication: DEPRESSION
     Dosage: 75 MG (FREQUENCY UNKNOWN), ORAL
     Route: 048
     Dates: start: 20040204, end: 20040923

REACTIONS (1)
  - BLOOD ALKALINE PHOSPHATASE INCREASED [None]
